FAERS Safety Report 14965808 (Version 1)
Quarter: 2018Q2

REPORT INFORMATION
  Report Type: Spontaneous
  Country: US (occurrence: US)
  Receive Date: 20180602
  Receipt Date: 20180602
  Transmission Date: 20180711
  Serious: Yes (Death, Life-Threatening, Hospitalization, Other)
  Sender: FDA-Public Use
  Company Number: US-TEVA-2018-US-901502

PATIENT
  Sex: Male

DRUGS (1)
  1. AMIODARONE [Suspect]
     Active Substance: AMIODARONE
     Indication: ATRIAL FIBRILLATION

REACTIONS (11)
  - Cough [Unknown]
  - Death [Fatal]
  - Fatigue [Unknown]
  - Condition aggravated [Unknown]
  - Dyspnoea [Unknown]
  - Wheezing [Unknown]
  - Asthenia [Unknown]
  - Respiratory failure [Unknown]
  - Off label use [Unknown]
  - Pulmonary fibrosis [Unknown]
  - Interstitial lung disease [Unknown]

NARRATIVE: CASE EVENT DATE: 201603
